FAERS Safety Report 20508970 (Version 1)
Quarter: 2022Q1

REPORT INFORMATION
  Report Type: Spontaneous
  Country: US (occurrence: US)
  Receive Date: 20220223
  Receipt Date: 20220223
  Transmission Date: 20220423
  Serious: No
  Sender: FDA-Public Use
  Company Number: USA--2022-US-000120

PATIENT
  Age: 61 Year
  Sex: Female

DRUGS (4)
  1. LATANOPROST [Suspect]
     Active Substance: LATANOPROST
     Dates: start: 20220209, end: 20220215
  2. Refresh Plus PF ophthalmic solution [Concomitant]
  3. One a Day Women^s Multivitamins [Concomitant]
     Route: 048
  4. CLARITIN [Concomitant]
     Active Substance: LORATADINE
     Route: 048

REACTIONS (9)
  - Ocular hyperaemia [Recovering/Resolving]
  - Oral disorder [Recovering/Resolving]
  - Chest discomfort [Recovered/Resolved]
  - Hypoaesthesia [Recovered/Resolved]
  - Paraesthesia [Recovered/Resolved]
  - Foreign body in eye [Recovered/Resolved with Sequelae]
  - Increased upper airway secretion [Not Recovered/Not Resolved]
  - Blepharitis [Recovering/Resolving]
  - Condition aggravated [Unknown]

NARRATIVE: CASE EVENT DATE: 20220209
